FAERS Safety Report 24645096 (Version 2)
Quarter: 2024Q4

REPORT INFORMATION
  Report Type: Spontaneous
  Country: US (occurrence: US)
  Receive Date: 20241121
  Receipt Date: 20241212
  Transmission Date: 20250114
  Serious: Yes (Hospitalization)
  Sender: SAREPTA THERAPEUTICS
  Company Number: US-SAREPTA THERAPEUTICS INC.-SRP2024-005276

PATIENT
  Age: 24 Year
  Sex: Male

DRUGS (1)
  1. EXONDYS 51 [Suspect]
     Active Substance: ETEPLIRSEN
     Indication: Product used for unknown indication
     Dosage: 1600 MILLIGRAM, WEEKLY
     Route: 042

REACTIONS (3)
  - Hypoaesthesia [Unknown]
  - Tremor [Unknown]
  - Eating disorder [Unknown]

NARRATIVE: CASE EVENT DATE: 20241101
